FAERS Safety Report 7057949-3 (Version None)
Quarter: 2010Q4

REPORT INFORMATION
  Report Type: 
  Country: None (occurrence: None)
  Receive Date: 20101022
  Receipt Date: 20101013
  Transmission Date: 20110411
  Serious: Yes (Death)
  Sender: FDA-Public Use
  Company Number: CH-TEVA-251785ISR

PATIENT
  Age: 55 Year
  Sex: Male

DRUGS (2)
  1. BLEOMYCIN [Suspect]
     Indication: TESTIS CANCER
     Route: 042
     Dates: start: 20090415, end: 20090417
  2. PACLITAXEL [Suspect]
     Indication: TESTIS CANCER
     Route: 042
     Dates: start: 20090415, end: 20090417

REACTIONS (4)
  - DRUG TOXICITY [None]
  - PNEUMOCYSTIS JIROVECI PNEUMONIA [None]
  - PNEUMONIA FUNGAL [None]
  - RESPIRATORY FAILURE [None]
